FAERS Safety Report 7389894-8 (Version None)
Quarter: 2011Q2

REPORT INFORMATION
  Report Type: 
  Country: None (occurrence: None)
  Receive Date: 20110401
  Receipt Date: 20110321
  Transmission Date: 20111010
  Serious: Yes (Hospitalization, Other)
  Sender: FDA-Public Use
  Company Number: US-MYLANLABS-2011S1005784

PATIENT
  Sex: Male

DRUGS (1)
  1. LISINOPRIL [Suspect]
     Indication: BLOOD PRESSURE
     Route: 048
     Dates: start: 20100608

REACTIONS (2)
  - LOSS OF CONSCIOUSNESS [None]
  - ABDOMINAL DISCOMFORT [None]
